FAERS Safety Report 21723929 (Version 1)
Quarter: 2022Q4

REPORT INFORMATION
  Report Type: Spontaneous
  Country: CN (occurrence: CN)
  Receive Date: 20221213
  Receipt Date: 20221213
  Transmission Date: 20230113
  Serious: Yes (Other)
  Sender: FDA-Public Use
  Company Number: CN-NAPPMUNDI-GBR-2022-0103697

PATIENT
  Age: 73 Year
  Sex: Male
  Weight: 65 kg

DRUGS (2)
  1. OXYCODONE HYDROCHLORIDE [Suspect]
     Active Substance: OXYCODONE HYDROCHLORIDE
     Indication: Lung neoplasm malignant
     Dosage: 10 MILLIGRAM, BID
     Route: 048
     Dates: start: 20221129, end: 20221202
  2. PREGABALIN [Suspect]
     Active Substance: PREGABALIN
     Indication: Lung neoplasm malignant
     Dosage: 75 MILLIGRAM, DAILY
     Route: 048
     Dates: start: 20221129, end: 20221202

REACTIONS (3)
  - Restlessness [Recovering/Resolving]
  - Incoherent [Recovering/Resolving]
  - Hallucination [Recovering/Resolving]

NARRATIVE: CASE EVENT DATE: 20221202
